FAERS Safety Report 18318658 (Version 1)
Quarter: 2020Q3

REPORT INFORMATION
  Report Type: Spontaneous
  Country: PR (occurrence: US)
  Receive Date: 20200927
  Receipt Date: 20200927
  Transmission Date: 20201103
  Serious: No
  Sender: FDA-Public Use
  Company Number: None

PATIENT
  Age: 36 Year
  Sex: Male
  Weight: 81 kg

DRUGS (6)
  1. CIALIS [Concomitant]
     Active Substance: TADALAFIL
  2. DHEA [Concomitant]
     Active Substance: PRASTERONE
  3. FINASTERIDE. [Suspect]
     Active Substance: FINASTERIDE
     Dosage: ?          QUANTITY:1 TABLET(S);?
     Route: 048
  4. WELLBUTRIN [Concomitant]
     Active Substance: BUPROPION HYDROCHLORIDE
  5. YOHIMBE L ARGININE [Concomitant]
  6. VIAGRA [Concomitant]
     Active Substance: SILDENAFIL CITRATE

REACTIONS (2)
  - Erectile dysfunction [None]
  - Libido decreased [None]

NARRATIVE: CASE EVENT DATE: 20200923
